FAERS Safety Report 4755177-5 (Version None)
Quarter: 2005Q3

REPORT INFORMATION
  Report Type: 
  Country: None (occurrence: None)
  Receive Date: 20050829
  Receipt Date: 20050819
  Transmission Date: 20060218
  Serious: Yes (Other)
  Sender: FDA-Public Use
  Company Number: US-JNJFOC-20050803168

PATIENT
  Age: 41 Year
  Sex: Female

DRUGS (3)
  1. REMICADE [Suspect]
     Route: 042
  2. REMICADE [Suspect]
     Indication: RHEUMATOID ARTHRITIS
     Dosage: 28TH DOSE
     Route: 042
  3. PREDNISONE TAB [Concomitant]

REACTIONS (3)
  - DOUBLE STRANDED DNA ANTIBODY [None]
  - LUPUS-LIKE SYNDROME [None]
  - PLEURISY [None]
